FAERS Safety Report 4538932-6 (Version None)
Quarter: 2004Q4

REPORT INFORMATION
  Report Type: 
  Country: None (occurrence: None)
  Receive Date: 20041222
  Receipt Date: 20041202
  Transmission Date: 20050328
  Serious: Yes (Hospitalization)
  Sender: FDA-Public Use
  Company Number: US_0412108836

PATIENT
  Age: 74 Year
  Sex: Female
  Weight: 56 kg

DRUGS (2)
  1. FORTEO [Suspect]
     Indication: OSTEOPOROSIS
     Dosage: 20 UG/1 DAY
     Dates: start: 20041025
  2. NIACIN [Concomitant]

REACTIONS (2)
  - CHEST PAIN [None]
  - PYREXIA [None]
